FAERS Safety Report 9490467 (Version 1)
Quarter: 2013Q3

REPORT INFORMATION
  Report Type: Spontaneous
  Country: TR (occurrence: None)
  Receive Date: 20130823
  Receipt Date: 20130823
  Transmission Date: 20140520
  Serious: Yes (Death, Hospitalization)
  Sender: FDA-Public Use
  Company Number: 2013P1018622

PATIENT
  Age: 39 Year
  Sex: Female

DRUGS (4)
  1. LITHIUM [Suspect]
     Indication: BIPOLAR DISORDER
  2. METRONIDAZOLE [Suspect]
     Indication: BRAIN ABSCESS
  3. OLANZAPINE [Suspect]
     Indication: BIPOLAR DISORDER
  4. VORICONAZOLE [Suspect]
     Indication: BRAIN ABSCESS

REACTIONS (17)
  - Leukocytosis [None]
  - Anaemia [None]
  - Hepatic enzyme increased [None]
  - Haemodialysis [None]
  - Cardiac arrest [None]
  - Hypotension [None]
  - Atrioventricular block [None]
  - Bradycardia [None]
  - Grand mal convulsion [None]
  - Cardiotoxicity [None]
  - Toxicity to various agents [None]
  - Myoclonic epilepsy [None]
  - Somnolence [None]
  - Unresponsive to stimuli [None]
  - Hyporeflexia [None]
  - Pyrexia [None]
  - Extensor plantar response [None]
